FAERS Safety Report 7368616-0 (Version None)
Quarter: 2011Q1

REPORT INFORMATION
  Report Type: 
  Country: None (occurrence: None)
  Receive Date: 20110323
  Receipt Date: 20110302
  Transmission Date: 20110831
  Serious: No
  Sender: FDA-Public Use
  Company Number: US-B.I. PHARMACEUTICALS,INC./RIDGEFIELD-2011-BP-07298BP

PATIENT
  Sex: Male

DRUGS (3)
  1. OXYCODONE [Concomitant]
     Indication: PAIN
  2. COMBIVENT [Suspect]
     Indication: EMPHYSEMA
     Dosage: 4 PUF
     Route: 055
     Dates: start: 20100101
  3. OXYCONTIN [Concomitant]
     Indication: CANCER PAIN

REACTIONS (1)
  - DRUG INEFFECTIVE [None]
